FAERS Safety Report 7246389-X (Version None)
Quarter: 2011Q1

REPORT INFORMATION
  Report Type: 
  Country: None (occurrence: None)
  Receive Date: 20110126
  Receipt Date: 20101214
  Transmission Date: 20110831
  Serious: Yes (Death, Life-Threatening, Other)
  Sender: FDA-Public Use
  Company Number: US-BAXTER-2009BH019828

PATIENT
  Age: 70 Year
  Sex: Male

DRUGS (41)
  1. FLOMAX [Concomitant]
     Indication: PRODUCT USED FOR UNKNOWN INDICATION
     Route: 065
  2. FUROSEMIDE [Concomitant]
     Indication: PRODUCT USED FOR UNKNOWN INDICATION
     Route: 065
  3. FENTANYL [Concomitant]
     Indication: THROMBOLYSIS
     Route: 042
  4. MAGNESIUM [Concomitant]
     Indication: ARTERIOGRAM
     Route: 042
  5. HEPARIN SODIUM INJECTION [Suspect]
     Indication: THROMBOLYSIS
     Route: 042
     Dates: start: 20071203, end: 20071203
  6. HEPARIN SODIUM 5,000 UNITS IN DEXTROSE 5% [Suspect]
     Indication: THROMBOLYSIS
     Route: 041
     Dates: start: 20071203, end: 20071204
  7. TISSUE PLASMINOGEN ACTIVATOR IN NORMAL SALINE [Suspect]
     Indication: THROMBOLYSIS
     Route: 065
     Dates: start: 20071203, end: 20071203
  8. DETROL [Concomitant]
     Indication: PRODUCT USED FOR UNKNOWN INDICATION
     Route: 065
  9. ENABLEX [Concomitant]
     Indication: PRODUCT USED FOR UNKNOWN INDICATION
     Route: 065
  10. NORMAL SALINE [Concomitant]
     Indication: ARTERIOGRAM
     Route: 042
  11. HEPARIN SODIUM INJECTION [Suspect]
     Indication: ANGIOGRAM
     Route: 042
     Dates: start: 20071203, end: 20071203
  12. JANVENT [Concomitant]
     Indication: PRODUCT USED FOR UNKNOWN INDICATION
     Route: 065
  13. PLAVIX [Concomitant]
     Indication: PRODUCT USED FOR UNKNOWN INDICATION
     Route: 065
  14. LOVENOX [Concomitant]
     Indication: PRODUCT USED FOR UNKNOWN INDICATION
     Route: 065
  15. LANTUS [Concomitant]
     Indication: PRODUCT USED FOR UNKNOWN INDICATION
     Route: 065
  16. FENTANYL [Concomitant]
     Indication: ARTERIOGRAM
     Route: 042
  17. VANCOMYCIN [Concomitant]
     Indication: ARTERIOGRAM
     Route: 042
  18. VERSED [Concomitant]
     Indication: ARTERIOGRAM
     Route: 042
  19. PLAVIX [Concomitant]
     Indication: ARTERIOGRAM
     Route: 048
  20. HEPARIN SODIUM INJECTION [Suspect]
     Route: 041
     Dates: start: 20071203, end: 20071208
  21. TISSUE PLASMINOGEN ACTIVATOR IN NORMAL SALINE [Suspect]
     Route: 042
     Dates: start: 20071203, end: 20071204
  22. COREG [Concomitant]
     Indication: PRODUCT USED FOR UNKNOWN INDICATION
     Route: 065
  23. LIPITOR [Concomitant]
     Route: 065
  24. PROTONIX [Concomitant]
     Indication: PRODUCT USED FOR UNKNOWN INDICATION
     Route: 065
  25. FLUCONAZOLE [Concomitant]
     Indication: PRODUCT USED FOR UNKNOWN INDICATION
     Route: 065
  26. PROCRIT [Concomitant]
     Indication: PRODUCT USED FOR UNKNOWN INDICATION
     Route: 065
  27. COREG [Concomitant]
     Route: 065
  28. 5% DEXTROSE INJECTION [Concomitant]
     Indication: PRODUCT USED FOR UNKNOWN INDICATION
     Route: 042
  29. HEPARIN SODIUM INJECTION [Suspect]
     Route: 041
     Dates: start: 20071203, end: 20071208
  30. HEPARIN SODIUM 5,000 UNITS IN DEXTROSE 5% [Suspect]
     Route: 041
     Dates: start: 20071204, end: 20071204
  31. ASPIRIN [Concomitant]
     Indication: PRODUCT USED FOR UNKNOWN INDICATION
     Route: 065
  32. SOLU-MEDROL [Concomitant]
     Indication: PRODUCT USED FOR UNKNOWN INDICATION
     Route: 065
  33. COLACE [Concomitant]
     Indication: PRODUCT USED FOR UNKNOWN INDICATION
     Route: 065
  34. ASPIRIN [Concomitant]
     Indication: THROMBOLYSIS
     Route: 048
  35. VERSED [Concomitant]
     Indication: THROMBOLYSIS
     Route: 042
  36. DIOVAN [Concomitant]
     Indication: PRODUCT USED FOR UNKNOWN INDICATION
     Route: 065
  37. LISINOPRIL [Concomitant]
     Indication: PRODUCT USED FOR UNKNOWN INDICATION
     Route: 065
  38. HYDRALAZINE HCL [Concomitant]
     Indication: PRODUCT USED FOR UNKNOWN INDICATION
     Route: 065
  39. LIPITOR [Concomitant]
     Indication: PRODUCT USED FOR UNKNOWN INDICATION
     Route: 065
  40. ISOSORBIDE DINITRATE [Concomitant]
     Indication: PRODUCT USED FOR UNKNOWN INDICATION
     Route: 065
  41. MORPHINE [Concomitant]
     Indication: ARTERIOGRAM
     Route: 042

REACTIONS (20)
  - SEPSIS [None]
  - PNEUMONIA [None]
  - RESPIRATORY FAILURE [None]
  - MENTAL STATUS CHANGES [None]
  - GASTROINTESTINAL HAEMORRHAGE [None]
  - ACIDOSIS [None]
  - DIARRHOEA [None]
  - DISSEMINATED INTRAVASCULAR COAGULATION [None]
  - ASTHENIA [None]
  - CARDIOMYOPATHY [None]
  - UNRESPONSIVE TO STIMULI [None]
  - HAEMATURIA [None]
  - NECROSIS ISCHAEMIC [None]
  - RHABDOMYOLYSIS [None]
  - BRAIN HYPOXIA [None]
  - PERIPHERAL VASCULAR DISORDER [None]
  - ACUTE MYOCARDIAL INFARCTION [None]
  - CEREBROVASCULAR ACCIDENT [None]
  - HYPOTENSION [None]
  - RENAL FAILURE ACUTE [None]
